FAERS Safety Report 8722672 (Version 3)
Quarter: 2014Q2

REPORT INFORMATION
  Report Type: Spontaneous
  Country: US (occurrence: US)
  Receive Date: 20120814
  Receipt Date: 20140401
  Transmission Date: 20141212
  Serious: Yes (Hospitalization, Other)
  Sender: FDA-Public Use
  Company Number: US-009507513-1208USA001533

PATIENT
  Sex: Female
  Weight: 68.27 kg

DRUGS (8)
  1. FOSAMAX [Suspect]
     Indication: OSTEOPOROSIS
     Dosage: 70 MG, UNK
     Route: 048
     Dates: start: 20030902, end: 20050307
  2. FOSAMAX [Suspect]
     Dosage: 70 MG, UNK
     Route: 048
     Dates: start: 20050307
  3. FOSAMAX [Suspect]
     Indication: OSTEOPOROSIS
     Dosage: 70 MG, UNK
     Route: 048
     Dates: start: 20080206, end: 20100603
  4. ALENDRONATE SODIUM [Suspect]
     Indication: OSTEOPOROSIS
     Dosage: 70 MG, UNK
     Route: 048
     Dates: start: 20080206, end: 20100603
  5. VITAMINS (UNSPECIFIED) [Concomitant]
     Dosage: UNK, QD
     Dates: start: 1990
  6. CHOLECALCIFEROL [Concomitant]
     Dosage: 1000 IU, BID
     Dates: start: 1990
  7. CITRACAL [Concomitant]
     Dosage: UNK, BID
     Dates: start: 1995
  8. OMEPRAZOLE [Concomitant]
     Dosage: UNK
     Dates: start: 200101

REACTIONS (12)
  - Femur fracture [Recovered/Resolved]
  - Intramedullary rod insertion [Recovered/Resolved]
  - Low turnover osteopathy [Unknown]
  - Vitamin D deficiency [Unknown]
  - Blood cholesterol increased [Unknown]
  - Hypothyroidism [Unknown]
  - Fibromyalgia [Unknown]
  - Injury [Unknown]
  - Gastrooesophageal reflux disease [Unknown]
  - Hysterectomy [Unknown]
  - Memory impairment [Unknown]
  - Chronic obstructive pulmonary disease [Not Recovered/Not Resolved]
